FAERS Safety Report 15803053 (Version 2)
Quarter: 2019Q1

REPORT INFORMATION
  Report Type: Report from Study
  Country: US (occurrence: US)
  Receive Date: 20190109
  Receipt Date: 20190206
  Transmission Date: 20190417
  Serious: Yes (Hospitalization)
  Sender: FDA-Public Use
  Company Number: US-EXELIXIS-XL18418018074

PATIENT
  Age: 15 Year
  Sex: Male
  Weight: 36.9 kg

DRUGS (5)
  1. CETIRIZINE [Concomitant]
     Active Substance: CETIRIZINE HYDROCHLORIDE
  2. MELATONIN [Concomitant]
     Active Substance: MELATONIN
  3. XL184 [Suspect]
     Active Substance: CABOZANTINIB
     Indication: NEUROFIBROMATOSIS
     Dosage: 40 MG, QD
     Route: 048
     Dates: start: 20181211
  4. ALBUTEROL. [Concomitant]
     Active Substance: ALBUTEROL
  5. FLUTICASONE. [Concomitant]
     Active Substance: FLUTICASONE

REACTIONS (2)
  - Dizziness [Recovered/Resolved with Sequelae]
  - Gait disturbance [Recovered/Resolved with Sequelae]

NARRATIVE: CASE EVENT DATE: 20181226
